FAERS Safety Report 4395789-4 (Version None)
Quarter: 2004Q3

REPORT INFORMATION
  Report Type: 
  Country: None (occurrence: None)
  Receive Date: 20040713
  Receipt Date: 20040226
  Transmission Date: 20050211
  Serious: Yes (Congenital Anomaly)
  Sender: FDA-Public Use
  Company Number: PT-ROCHE-360100

PATIENT
  Age: 37 Year
  Sex: Female
  Weight: 54 kg

DRUGS (2)
  1. ROACCUTAN [Suspect]
     Indication: DRUG USE FOR UNKNOWN INDICATION
     Route: 048
     Dates: start: 20040204, end: 20040226
  2. TRI-MINULET [Concomitant]
     Indication: CONTRACEPTION
     Route: 048
     Dates: start: 19850615

REACTIONS (4)
  - ABORTION INDUCED [None]
  - CONGENITAL ANOMALY [None]
  - DRUG EXPOSURE DURING PREGNANCY [None]
  - PREGNANCY [None]
